FAERS Safety Report 21269757 (Version 1)
Quarter: 2022Q3

REPORT INFORMATION
  Report Type: Spontaneous
  Country: US (occurrence: None)
  Receive Date: 20220830
  Receipt Date: 20220830
  Transmission Date: 20221027
  Serious: Yes (Hospitalization)
  Sender: FDA-Public Use
  Company Number: US-ROCHE-3167096

PATIENT
  Age: 13 Year
  Sex: Male

DRUGS (14)
  1. DORNASE ALFA [Suspect]
     Active Substance: DORNASE ALFA
     Indication: Cystic fibrosis
     Route: 050
  2. AZTREONAM LYSINE [Suspect]
     Active Substance: AZTREONAM LYSINE
     Indication: Cystic fibrosis
     Dosage: 1 VIAL, 28 DAYS ON AND 28 DAYS OFF
     Route: 050
  3. VENTOLIN [Concomitant]
     Active Substance: ALBUTEROL SULFATE
  4. FLOVENT [Concomitant]
     Active Substance: FLUTICASONE PROPIONATE
  5. RANITIDINE [Concomitant]
     Active Substance: RANITIDINE
  6. SODIUM CHLORIDE [Concomitant]
     Active Substance: SODIUM CHLORIDE
  7. CREON [Concomitant]
     Active Substance: PANCRELIPASE AMYLASE\PANCRELIPASE LIPASE\PANCRELIPASE PROTEASE
  8. SERTRALINE [Concomitant]
     Active Substance: SERTRALINE HYDROCHLORIDE
  9. CYPROHEPTADINE [Concomitant]
     Active Substance: CYPROHEPTADINE
  10. ALBUTEROL [Concomitant]
     Active Substance: ALBUTEROL
  11. FLUTICASONE [Concomitant]
     Active Substance: FLUTICASONE
  12. LORATADINE [Concomitant]
     Active Substance: LORATADINE
  13. MONTELUKAST [Concomitant]
     Active Substance: MONTELUKAST SODIUM
  14. COLISTIMETHATE [Concomitant]
     Active Substance: COLISTIMETHATE SODIUM

REACTIONS (2)
  - Cystic fibrosis respiratory infection suppression [Unknown]
  - Fatigue [Unknown]
